FAERS Safety Report 17019328 (Version 2)
Quarter: 2019Q4

REPORT INFORMATION
  Report Type: Report from Study
  Country: US (occurrence: US)
  Receive Date: 20191112
  Receipt Date: 20191118
  Transmission Date: 20200122
  Serious: Yes (Death, Hospitalization, Other)
  Sender: FDA-Public Use
  Company Number: US-ROCHE-1871706

PATIENT
  Age: 69 Year
  Sex: Male
  Weight: 76 kg

DRUGS (1)
  1. VEMURAFENIB. [Suspect]
     Active Substance: VEMURAFENIB
     Indication: NEOPLASM MALIGNANT
     Dosage: DATE OF FIRST DOSE OF VEMURAFENIB IN ANTECEDENT STUDY (NO25530): 20/MAR/2015 AND DATE OF MOST RECENT
     Route: 048
     Dates: start: 20150326

REACTIONS (3)
  - Impaired gastric emptying [Recovered/Resolved]
  - Malignant melanoma in situ [Recovered/Resolved]
  - Pneumonia aspiration [Fatal]

NARRATIVE: CASE EVENT DATE: 20150727
